FAERS Safety Report 10449041 (Version 1)
Quarter: 2014Q3

REPORT INFORMATION
  Report Type: Spontaneous
  Country: US (occurrence: None)
  Receive Date: 20140911
  Receipt Date: 20140911
  Transmission Date: 20150326
  Serious: Yes (Death, Other)
  Sender: FDA-Public Use
  Company Number: None

PATIENT
  Age: 86 Year
  Sex: Female
  Weight: 45.36 kg

DRUGS (10)
  1. TEGRETOL [Concomitant]
     Active Substance: CARBAMAZEPINE
  2. SIMVASTATIN. [Concomitant]
     Active Substance: SIMVASTATIN
  3. METROPOLOL [Concomitant]
     Active Substance: METOPROLOL
  4. LASIX [Concomitant]
     Active Substance: FUROSEMIDE
  5. ATIVAN [Concomitant]
     Active Substance: LORAZEPAM
  6. PLAVIX [Concomitant]
     Active Substance: CLOPIDOGREL BISULFATE
  7. CEFEPIME [Suspect]
     Active Substance: CEFEPIME\CEFEPIME HYDROCHLORIDE
     Indication: PNEUMONIA
     Dosage: GIVEN IV PIGGY-BACK Q 12 HR, BID - IV
     Route: 042
     Dates: start: 20140619, end: 20140622
  8. KEPPRA [Concomitant]
     Active Substance: LEVETIRACETAM
  9. METFORMIN [Concomitant]
     Active Substance: METFORMIN HYDROCHLORIDE
  10. ALLOPURINOL. [Concomitant]
     Active Substance: ALLOPURINOL

REACTIONS (4)
  - Brain injury [None]
  - Encephalopathy [None]
  - Status epilepticus [None]
  - Terminal state [None]

NARRATIVE: CASE EVENT DATE: 2014
